FAERS Safety Report 15388264 (Version 1)
Quarter: 2018Q4

REPORT INFORMATION
  Report Type: Spontaneous
  Country: NL (occurrence: NL)
  Receive Date: 20180915
  Receipt Date: 20180915
  Transmission Date: 20190204
  Serious: Yes (Hospitalization, Other)
  Sender: FDA-Public Use
  Company Number: NL-AUROBINDO-AUR-APL-2018-045643

PATIENT
  Age: 73 Year
  Sex: Male

DRUGS (6)
  1. CAPECITABINE. [Suspect]
     Active Substance: CAPECITABINE
     Dosage: CYCLE 5
     Route: 065
     Dates: start: 20180410
  2. OXALIPLATIN. [Suspect]
     Active Substance: OXALIPLATIN
     Indication: COLORECTAL CANCER METASTATIC
     Dosage: UNTIL CYCLE 5
     Route: 065
     Dates: start: 20180103
  3. CAPECITABINE. [Suspect]
     Active Substance: CAPECITABINE
     Indication: COLORECTAL CANCER METASTATIC
     Dosage: UNTIL CYCLE 5
     Route: 065
     Dates: start: 20180103
  4. CAPECITABINE. [Suspect]
     Active Substance: CAPECITABINE
     Dosage: MONOTHERAPY
     Route: 065
     Dates: start: 20180501
  5. BEVACIZUMAB. [Suspect]
     Active Substance: BEVACIZUMAB
     Indication: COLORECTAL CANCER METASTATIC
     Dosage: UNTIL CYCLE 5
     Route: 065
     Dates: start: 20180103
  6. BEVACIZUMAB. [Suspect]
     Active Substance: BEVACIZUMAB
     Indication: PRODUCT USED FOR UNKNOWN INDICATION
     Dosage: CYCLE 5
     Route: 065
     Dates: start: 20180410

REACTIONS (2)
  - Wound infection [Recovered/Resolved]
  - Urinary tract infection [Recovered/Resolved]

NARRATIVE: CASE EVENT DATE: 20180726
